FAERS Safety Report 5786024-0 (Version None)
Quarter: 2008Q2

REPORT INFORMATION
  Report Type: 
  Country: None (occurrence: None)
  Receive Date: 20080620
  Receipt Date: 20080620
  Transmission Date: 20081010
  Serious: Yes (Other)
  Sender: FDA-Public Use
  Company Number: None

PATIENT
  Age: 31 Year
  Sex: Female
  Weight: 144.2439 kg

DRUGS (1)
  1. TRUVADA [Suspect]
     Indication: ACCIDENT AT WORK
     Dosage: 1 PILL PER DAY PO
     Route: 048
     Dates: start: 20080609, end: 20080614

REACTIONS (4)
  - ANXIETY [None]
  - DIZZINESS [None]
  - FATIGUE [None]
  - GASTROENTERITIS VIRAL [None]
